FAERS Safety Report 12253773 (Version 2)
Quarter: 2016Q2

REPORT INFORMATION
  Report Type: Spontaneous
  Country: US (occurrence: US)
  Receive Date: 20160411
  Receipt Date: 20160429
  Transmission Date: 20160815
  Serious: Yes (Other)
  Sender: FDA-Public Use
  Company Number: US-TEVA-649427USA

PATIENT
  Age: 37 Year
  Sex: Female

DRUGS (1)
  1. ZECUITY [Suspect]
     Active Substance: SUMATRIPTAN SUCCINATE
     Route: 062
     Dates: start: 20160213

REACTIONS (6)
  - Application site erythema [Recovering/Resolving]
  - Application site swelling [Recovering/Resolving]
  - Application site scar [Unknown]
  - Application site reaction [Unknown]
  - Application site pain [Recovered/Resolved]
  - Application site discolouration [Unknown]

NARRATIVE: CASE EVENT DATE: 20160213
